FAERS Safety Report 4432336-2 (Version None)
Quarter: 2004Q3

REPORT INFORMATION
  Report Type: 
  Country: None (occurrence: None)
  Receive Date: 20040820
  Receipt Date: 20040805
  Transmission Date: 20050211
  Serious: Yes (Hospitalization)
  Sender: FDA-Public Use
  Company Number: 04P-144-0269757-00

PATIENT
  Age: 78 Year
  Sex: Female
  Weight: 62 kg

DRUGS (7)
  1. ISOPTIN SR [Suspect]
     Indication: ANGINA PECTORIS
     Dosage: 120 MG
     Dates: start: 19980101
  2. DEPAKENE [Suspect]
     Indication: EPILEPSY
     Dosage: 200 MG, 2 IN 12 HR, PER ORAL
     Route: 048
     Dates: start: 19900101, end: 20040228
  3. VASERETIC (VASERETIC) [Suspect]
     Indication: HYPERTENSION
     Dates: start: 19980101
  4. LEVOTHYROXINE SODIUM [Concomitant]
  5. CLOPIDOGREL BISULFATE [Concomitant]
  6. NITROGLYCERIN [Concomitant]
  7. PANTOPRAZOLE [Concomitant]

REACTIONS (2)
  - DRUG INTERACTION [None]
  - INAPPROPRIATE ANTIDIURETIC HORMONE SECRETION [None]
